FAERS Safety Report 7387717-4 (Version None)
Quarter: 2011Q1

REPORT INFORMATION
  Report Type: 
  Country: None (occurrence: None)
  Receive Date: 20110331
  Receipt Date: 20110324
  Transmission Date: 20110831
  Serious: Yes (Hospitalization)
  Sender: FDA-Public Use
  Company Number: ZA-GENZYME-POMP-1001433

PATIENT
  Sex: Male
  Weight: 10.6 kg

DRUGS (3)
  1. MYOZYME [Suspect]
     Indication: GLYCOGEN STORAGE DISEASE TYPE II
     Dosage: UNK
     Route: 042
     Dates: start: 20101001
  2. EPILIM [Suspect]
     Indication: CONVULSION
     Dosage: 2.2 ML, TID
     Dates: start: 20110301
  3. EPILIM [Suspect]
     Dosage: 100 MG, BID
     Dates: start: 20101101

REACTIONS (3)
  - TREMOR [None]
  - CONVULSION [None]
  - INTENTION TREMOR [None]
